FAERS Safety Report 15866075 (Version 3)
Quarter: 2019Q1

REPORT INFORMATION
  Report Type: Report from Study
  Country: AU (occurrence: AU)
  Receive Date: 20190125
  Receipt Date: 20190212
  Transmission Date: 20190417
  Serious: Yes (Hospitalization)
  Sender: FDA-Public Use
  Company Number: AU-ROCHE-2249523

PATIENT
  Age: 57 Year
  Sex: Female
  Weight: 72.1 kg

DRUGS (25)
  1. DEXAMETHASONE. [Concomitant]
     Active Substance: DEXAMETHASONE
     Indication: PREMEDICATION
     Route: 048
     Dates: start: 20190101, end: 20190102
  2. VITAMIN B12 [Concomitant]
     Active Substance: CYANOCOBALAMIN
     Indication: VITAMIN B12 DEFICIENCY
  3. RANITIDINE. [Concomitant]
     Active Substance: RANITIDINE
     Indication: PREMEDICATION
     Route: 065
     Dates: start: 20190102, end: 20190102
  4. RANITIDINE. [Concomitant]
     Active Substance: RANITIDINE
     Route: 065
     Dates: start: 20181206, end: 20181206
  5. COLOXYL WITH SENNA [Concomitant]
     Active Substance: DOCUSATE\SENNOSIDES
     Indication: CONSTIPATION
     Route: 065
     Dates: start: 20181025
  6. FILGRASTIM [Concomitant]
     Active Substance: FILGRASTIM
     Route: 065
     Dates: start: 20190105, end: 20190113
  7. PACLITAXEL. [Suspect]
     Active Substance: PACLITAXEL
     Indication: OVARIAN CANCER
     Dosage: DATE OF THEMOST RECENT DOSE OF PACLITAXEL PRIOR TO ONSET OF HYPERTENSION: 06/DEC/2018 (252 MG)?DATE
     Route: 042
     Dates: start: 20180831
  8. CARBOPLATIN. [Suspect]
     Active Substance: CARBOPLATIN
     Indication: OVARIAN CANCER
     Dosage: AT A DOSE TO ACHIEVE A TARGET AREA UNDER THE CURVE (AUC) OF 6 MILLIGRAMS PER MILLILITER/MINUTE (MG/M
     Route: 042
     Dates: start: 20180831
  9. IBUPROFEN. [Concomitant]
     Active Substance: IBUPROFEN
  10. AUGMENTIN [Concomitant]
     Active Substance: AMOXICILLIN\CLAVULANATE POTASSIUM
     Route: 065
     Dates: start: 20190118
  11. BEVACIZUMAB. [Suspect]
     Active Substance: BEVACIZUMAB
     Indication: OVARIAN CANCER
     Dosage: DATE OF THE MOST RECENT DOSE OF BEVACIZUMAB PRIOR TO ONSET OF HYPERTENSION AND FEVER: 06/DEC/2018 (1
     Route: 042
     Dates: start: 20180927
  12. HYDROCORTISONE. [Concomitant]
     Active Substance: HYDROCORTISONE
     Indication: RASH
     Route: 061
     Dates: start: 20180912
  13. NETUPITANT/PALONOSETRON HYDROCHLORIDE [Concomitant]
     Indication: PREMEDICATION
     Route: 065
     Dates: start: 20190102, end: 20190102
  14. HEPARINISED SALINE [Concomitant]
     Active Substance: HEPARIN SODIUM
     Route: 065
     Dates: start: 20190119, end: 20190119
  15. PANADOL [Concomitant]
     Active Substance: ACETAMINOPHEN
  16. FILGRASTIM [Concomitant]
     Active Substance: FILGRASTIM
     Route: 065
     Dates: start: 20181209, end: 20181217
  17. PROMETHAZINE [Concomitant]
     Active Substance: PROMETHAZINE\PROMETHAZINE HYDROCHLORIDE
     Route: 065
     Dates: start: 20181206, end: 20181206
  18. BLINDED ATEZOLIZUMAB [Suspect]
     Active Substance: ATEZOLIZUMAB
     Indication: OVARIAN CANCER
     Dosage: DATE OF THE MOST RECENT DOSE OF ATEZOLIZUMAB PRIOR TO ONSET OF HYPERTENSION AND FEVER: 06/DEC/2018
     Route: 042
     Dates: start: 20180831
  19. MAGMIN [Concomitant]
     Active Substance: MAGNESIUM ASPARTATE
     Indication: BLOOD MAGNESIUM DECREASED
  20. METOCLOPRAMIDE. [Concomitant]
     Active Substance: METOCLOPRAMIDE
     Indication: NAUSEA
     Route: 065
     Dates: start: 20180917
  21. METOCLOPRAMIDE. [Concomitant]
     Active Substance: METOCLOPRAMIDE
     Indication: VOMITING
  22. PROMETHAZINE [Concomitant]
     Active Substance: PROMETHAZINE\PROMETHAZINE HYDROCHLORIDE
     Indication: PREMEDICATION
     Route: 065
     Dates: start: 20190102, end: 20190102
  23. CLEXANE [Concomitant]
     Active Substance: ENOXAPARIN SODIUM
     Route: 065
     Dates: start: 20190117, end: 20190117
  24. NETUPITANT/PALONOSETRON HYDROCHLORIDE [Concomitant]
     Route: 065
     Dates: start: 20181206, end: 20181206
  25. PETER MAC MOUTHWASH (CARMOISINE/METHYL SALICYLATE/PEPPERMINT OIL/SODIU [Concomitant]
     Route: 065
     Dates: start: 20190118, end: 20190118

REACTIONS (2)
  - Hypertension [Not Recovered/Not Resolved]
  - Pyrexia [Recovered/Resolved]

NARRATIVE: CASE EVENT DATE: 20190102
